FAERS Safety Report 14301372 (Version 1)
Quarter: 2017Q4

REPORT INFORMATION
  Report Type: Spontaneous
  Country: US (occurrence: US)
  Receive Date: 20171218
  Receipt Date: 20171218
  Transmission Date: 20180321
  Serious: Yes (Other)
  Sender: FDA-Public Use
  Company Number: None

PATIENT
  Age: 65 Year
  Sex: Female
  Weight: 47.25 kg

DRUGS (5)
  1. VITAMIN D3 [Concomitant]
     Active Substance: CHOLECALCIFEROL
  2. MULTIPLE VITAMINS [Concomitant]
     Active Substance: VITAMINS
  3. LOVASTATIN 10 MG LUPIN PHAR [Suspect]
     Active Substance: LOVASTATIN
     Indication: TYPE IIA HYPERLIPIDAEMIA
     Dosage: ?          QUANTITY:90 TABLET(S);?
     Route: 048
     Dates: start: 20171208, end: 20171216
  4. CALCIUM [Concomitant]
     Active Substance: CALCIUM
  5. LALENDRONATE [Concomitant]

REACTIONS (10)
  - Myalgia [None]
  - Product substitution issue [None]
  - Flank pain [None]
  - Dyspepsia [None]
  - Chest discomfort [None]
  - Back pain [None]
  - Headache [None]
  - Dyspnoea [None]
  - Toxicity to various agents [None]
  - Gastrointestinal pain [None]

NARRATIVE: CASE EVENT DATE: 20171216
